FAERS Safety Report 15155472 (Version 1)
Quarter: 2018Q3

REPORT INFORMATION
  Report Type: Spontaneous
  Country: US (occurrence: US)
  Receive Date: 20180620
  Receipt Date: 20180620
  Transmission Date: 20181010
  Serious: Yes (Other)
  Sender: FDA-Public Use
  Company Number: None

PATIENT
  Age: 74 Year
  Sex: Male
  Weight: 84.6 kg

DRUGS (1)
  1. FLUOROURACIL CREAM, USP 5% [Suspect]
     Active Substance: FLUOROURACIL
     Indication: BASAL CELL CARCINOMA
     Route: 061
     Dates: start: 20180619, end: 20180620

REACTIONS (5)
  - Diarrhoea [None]
  - Abdominal pain upper [None]
  - Depression [None]
  - Asthenia [None]
  - Loss of personal independence in daily activities [None]

NARRATIVE: CASE EVENT DATE: 20180620
